FAERS Safety Report 10206343 (Version 1)
Quarter: 2014Q2

REPORT INFORMATION
  Report Type: Report from Study
  Country: US (occurrence: US)
  Receive Date: 20140530
  Receipt Date: 20140530
  Transmission Date: 20141212
  Serious: Yes (Death)
  Sender: FDA-Public Use
  Company Number: PHEH2014US010792

PATIENT
  Sex: Male

DRUGS (6)
  1. AFINITOR [Suspect]
     Dosage: 10 MG, EVERY DAY
     Route: 048
  2. FLUTICASONE [Concomitant]
  3. IMODIUM A-D [Concomitant]
  4. ZOCOR [Concomitant]
  5. ZANTAC [Concomitant]
  6. VITAMIN D [Concomitant]

REACTIONS (1)
  - Death [Fatal]
